FAERS Safety Report 5682893-3 (Version None)
Quarter: 2008Q1

REPORT INFORMATION
  Report Type: 
  Country: None (occurrence: None)
  Receive Date: 20080325
  Receipt Date: 20080311
  Transmission Date: 20080703
  Serious: Yes (Hospitalization)
  Sender: FDA-Public Use
  Company Number: 2007334316

PATIENT
  Age: 23 Year
  Sex: Female

DRUGS (5)
  1. BENADRYL [Suspect]
     Indication: SUICIDE ATTEMPT
     Dosage: 10 PILLS, ORAL
     Route: 048
     Dates: start: 20030901
  2. EXCEDRIN P.M. (DIPHENHYDRAMINE CITRATE, PARACETAMOL) [Suspect]
     Indication: SUICIDE ATTEMPT
     Dosage: 10 PILLS, ORAL
     Route: 048
     Dates: start: 20030901
  3. CELEXA [Suspect]
     Indication: SUICIDE ATTEMPT
     Dosage: 3 PILLS (20 MG), ORAL
     Route: 048
     Dates: start: 20030901
  4. ALCOHOL (ALCOHOL) [Suspect]
     Indication: SUICIDE ATTEMPT
     Dosage: UP TO SIX BEERS, ORAL
     Route: 048
     Dates: start: 20030901
  5. CELEXA [Concomitant]

REACTIONS (22)
  - ALCOHOL POISONING [None]
  - ANION GAP INCREASED [None]
  - BLOOD SODIUM INCREASED [None]
  - COGNITIVE DISORDER [None]
  - DEPRESSED LEVEL OF CONSCIOUSNESS [None]
  - DEPRESSION [None]
  - DISEASE RECURRENCE [None]
  - DIZZINESS [None]
  - DYSTHYMIC DISORDER [None]
  - ERYTHEMA [None]
  - FATIGUE [None]
  - FEELING ABNORMAL [None]
  - FLAT AFFECT [None]
  - JOINT RANGE OF MOTION DECREASED [None]
  - MULTIPLE DRUG OVERDOSE INTENTIONAL [None]
  - OEDEMA PERIPHERAL [None]
  - PROTEIN URINE PRESENT [None]
  - SEDATION [None]
  - SKIN DISCOMFORT [None]
  - STRESS [None]
  - SUICIDE ATTEMPT [None]
  - VOMITING [None]
